FAERS Safety Report 20307926 (Version 2)
Quarter: 2022Q2

REPORT INFORMATION
  Report Type: Spontaneous
  Country: US (occurrence: US)
  Receive Date: 20220107
  Receipt Date: 20220406
  Transmission Date: 20220721
  Serious: No
  Sender: FDA-Public Use
  Company Number: US-ALLERGAN-2141035US

PATIENT
  Age: 65 Year
  Sex: Female

DRUGS (4)
  1. QULIPTA [Suspect]
     Active Substance: ATOGEPANT
     Indication: Migraine
     Dosage: 60 MG, QD
     Route: 048
     Dates: start: 20211117, end: 20211124
  2. VITAMINS NOS [Concomitant]
     Active Substance: VITAMINS
  3. DULOXETINE [Concomitant]
     Active Substance: DULOXETINE
     Indication: Fibromyalgia
  4. ATORVASTATIN [Concomitant]
     Active Substance: ATORVASTATIN
     Indication: Blood cholesterol increased

REACTIONS (8)
  - Confusional state [Not Recovered/Not Resolved]
  - Abdominal pain upper [Recovering/Resolving]
  - Therapy interrupted [Unknown]
  - Pain [Recovered/Resolved]
  - Diarrhoea [Recovering/Resolving]
  - Dizziness [Not Recovered/Not Resolved]
  - Headache [Recovering/Resolving]
  - Product lot number issue [Unknown]

NARRATIVE: CASE EVENT DATE: 20211101
